FAERS Safety Report 6312557-4 (Version None)
Quarter: 2009Q3

REPORT INFORMATION
  Report Type: 
  Country: None (occurrence: None)
  Receive Date: 20090817
  Receipt Date: 20090519
  Transmission Date: 20100115
  Serious: No
  Sender: FDA-Public Use
  Company Number: US-ALLERGAN-0907055US

PATIENT
  Sex: Male

DRUGS (1)
  1. SANCTURA XR [Suspect]
     Indication: HYPERTONIC BLADDER
     Dosage: UNK, UNKNOWN
     Route: 048
     Dates: start: 20090301

REACTIONS (2)
  - RASH ERYTHEMATOUS [None]
  - VASCULITIS [None]
